FAERS Safety Report 7089023-4 (Version None)
Quarter: 2010Q4

REPORT INFORMATION
  Report Type: 
  Country: None (occurrence: None)
  Receive Date: 20101108
  Receipt Date: 20101104
  Transmission Date: 20110411
  Serious: Yes (Hospitalization)
  Sender: FDA-Public Use
  Company Number: A0890884A

PATIENT
  Age: 79 Year
  Sex: Female

DRUGS (12)
  1. ADVAIR DISKUS 100/50 [Suspect]
     Indication: CHRONIC OBSTRUCTIVE PULMONARY DISEASE
     Dosage: 2PUFF TWICE PER DAY
     Route: 055
     Dates: start: 20090101
  2. DIGOXIN [Suspect]
     Route: 065
  3. AMIODARONE HCL [Suspect]
     Indication: HEART RATE INCREASED
     Route: 065
  4. COZAAR [Suspect]
     Route: 065
  5. NITROGLYCERIN [Suspect]
     Route: 062
  6. VENTOLIN [Concomitant]
  7. COMBIVENT [Concomitant]
  8. ALBUTEROL [Concomitant]
  9. BUMETANIDE [Concomitant]
  10. SIMVASTATIN [Concomitant]
  11. OMEPRAZOLE [Concomitant]
  12. VITAMINS [Concomitant]

REACTIONS (4)
  - DYSPNOEA [None]
  - HEART RATE INCREASED [None]
  - ILL-DEFINED DISORDER [None]
  - OVERDOSE [None]
